FAERS Safety Report 5727062-3 (Version None)
Quarter: 2008Q2

REPORT INFORMATION
  Report Type: 
  Country: None (occurrence: None)
  Receive Date: 20080505
  Receipt Date: 20080422
  Transmission Date: 20081010
  Serious: Yes (Hospitalization)
  Sender: FDA-Public Use
  Company Number: NL-JNJFOC-20080405684

PATIENT
  Age: 23 Year
  Sex: Female

DRUGS (8)
  1. PREZISTA [Suspect]
     Indication: HIV INFECTION
     Route: 048
  2. KALETRA [Suspect]
     Indication: HIV INFECTION
     Route: 065
  3. LAMIVUDINE [Suspect]
     Indication: HIV INFECTION
     Route: 065
  4. TENOFOVIR [Suspect]
     Indication: HIV INFECTION
     Route: 065
  5. MARAVIROC [Suspect]
     Indication: HIV INFECTION
  6. RALTEGRAVIR [Suspect]
     Indication: HIV INFECTION
     Route: 048
  7. RITONAVIR [Suspect]
     Indication: HIV INFECTION
     Route: 048
  8. TRIMETHOPRIM + SULFAMETHOXAZOLE [Concomitant]

REACTIONS (9)
  - ALANINE AMINOTRANSFERASE INCREASED [None]
  - ASPARTATE AMINOTRANSFERASE INCREASED [None]
  - BLOOD AMYLASE INCREASED [None]
  - BLOOD CREATINE PHOSPHOKINASE INCREASED [None]
  - DRUG TOXICITY [None]
  - HEADACHE [None]
  - NAUSEA [None]
  - PARAESTHESIA [None]
  - VISION BLURRED [None]
